FAERS Safety Report 25682954 (Version 1)
Quarter: 2025Q3

REPORT INFORMATION
  Report Type: Report from Study
  Country: TW (occurrence: TW)
  Receive Date: 20250814
  Receipt Date: 20250814
  Transmission Date: 20251021
  Serious: Yes (Other)
  Sender: ALNYLAM PHARMACEUTICALS
  Company Number: TW-ALNYLAM PHARMACEUTICALS, INC.-ALN-2025-004884

PATIENT

DRUGS (4)
  1. GIVLAARI [Suspect]
     Active Substance: GIVOSIRAN SODIUM
     Indication: Porphyria acute
     Route: 058
     Dates: start: 20250428, end: 20250428
  2. GIVLAARI [Suspect]
     Active Substance: GIVOSIRAN SODIUM
     Route: 058
     Dates: start: 20250623, end: 20250623
  3. HEME [Concomitant]
     Active Substance: HEME
     Indication: Porphyria acute
     Dosage: 1 DOSAGE FORM, QD (250 MG PER 10 ML PER AMP)
     Route: 042
     Dates: start: 20250806, end: 20250806
  4. HEME [Concomitant]
     Active Substance: HEME
     Dosage: 1 DOSAGE FORM, QD (250 MG PER 10 ML PER AMP)
     Route: 042
     Dates: start: 20250807

REACTIONS (5)
  - Porphyria acute [Recovering/Resolving]
  - Nausea [Recovering/Resolving]
  - Vomiting [Recovering/Resolving]
  - Pain in extremity [Recovering/Resolving]
  - Back pain [Recovering/Resolving]

NARRATIVE: CASE EVENT DATE: 20250806
